FAERS Safety Report 8056336-9 (Version None)
Quarter: 2012Q1

REPORT INFORMATION
  Report Type: 
  Country: None (occurrence: None)
  Receive Date: 20120119
  Receipt Date: 20120109
  Transmission Date: 20120608
  Serious: Yes (Hospitalization)
  Sender: FDA-Public Use
  Company Number: US-ELI_LILLY_AND_COMPANY-US201201000162

PATIENT
  Sex: Female

DRUGS (17)
  1. CARVEDILOL [Concomitant]
     Dosage: 6.5 MG, UNK
  2. CITALOPRAM [Concomitant]
     Dosage: 10 MG, UNK
  3. OMEPRAZOLE [Concomitant]
     Dosage: 25 MG, UNK
  4. DEXLANSOPRAZOLE [Concomitant]
  5. PLAVIX [Concomitant]
     Dosage: 75 MG, UNK
  6. AMBIEN [Concomitant]
     Dosage: 10 MG, UNK
  7. ATENOLOL [Concomitant]
     Dosage: 50 MG, UNK
  8. LEVOTHYROXINE SODIUM [Concomitant]
     Dosage: .05 MG, UNK
  9. FORTEO [Suspect]
     Indication: OSTEOPOROSIS
     Dosage: 20 UG, QD
     Route: 065
     Dates: start: 20110901
  10. BENZONATATE [Concomitant]
     Dosage: 100 MG, UNK
  11. INSULIN [Concomitant]
  12. LORATADINE [Concomitant]
     Dosage: 10 MG, UNK
  13. LIPITOR [Concomitant]
     Dosage: 10 MG, UNK
  14. LEVOFLOXACIN [Concomitant]
     Dosage: 500 MG, UNK
  15. FORTEO [Suspect]
     Dosage: 20 UG, QD
  16. AMOXICILLIN AND CLAVULANATE POTASSIUM [Concomitant]
     Dosage: 875 MG, UNK
  17. ULORIC [Concomitant]
     Dosage: 10 MG, UNK

REACTIONS (10)
  - DIZZINESS [None]
  - DEHYDRATION [None]
  - KIDNEY INFECTION [None]
  - COUGH [None]
  - FEELING ABNORMAL [None]
  - BRONCHITIS [None]
  - INJECTION SITE REACTION [None]
  - INJECTION SITE ULCER [None]
  - MALAISE [None]
  - NASOPHARYNGITIS [None]
